FAERS Safety Report 6581899-X (Version None)
Quarter: 2010Q1

REPORT INFORMATION
  Report Type: 
  Country: None (occurrence: None)
  Receive Date: 20100215
  Receipt Date: 20100208
  Transmission Date: 20100710
  Serious: No
  Sender: FDA-Public Use
  Company Number: US-B.I. PHARMACEUTICALS,INC./RIDGEFIELD-2009-BP-13922BP

PATIENT
  Sex: Male

DRUGS (6)
  1. SPIRIVA [Suspect]
     Indication: ASTHMA
     Dosage: 18 MCG
     Route: 055
     Dates: start: 20091001
  2. ALBUTEROL [Concomitant]
     Indication: ASTHMA
     Route: 055
  3. SYMBICORT [Concomitant]
     Indication: ASTHMA
     Route: 055
  4. XOPENEX [Concomitant]
     Indication: ASTHMA
     Route: 055
  5. IBUPROFEN [Concomitant]
     Indication: NECK INJURY
  6. LORTAB [Concomitant]
     Indication: NECK INJURY

REACTIONS (2)
  - DYSPNOEA [None]
  - EYE MOVEMENT DISORDER [None]
